FAERS Safety Report 25045507 (Version 1)
Quarter: 2025Q1

REPORT INFORMATION
  Report Type: Spontaneous
  Country: CN (occurrence: CN)
  Receive Date: 20250306
  Receipt Date: 20250306
  Transmission Date: 20250409
  Serious: Yes (Hospitalization)
  Sender: PAREXEL
  Company Number: CN-SHANGHAI JUNSHI BIOSCIENCES CO., LTD.-CN2025013214

PATIENT

DRUGS (3)
  1. TORIPALIMAB [Suspect]
     Active Substance: TORIPALIMAB
     Indication: Oesophageal carcinoma
     Route: 041
     Dates: start: 20250108
  2. PACLITAXEL [Suspect]
     Active Substance: PACLITAXEL
     Indication: Oesophageal carcinoma
     Dosage: 100 MG (D1), WEEKLY
     Route: 041
     Dates: start: 20250101
  3. ERBITUX [Suspect]
     Active Substance: CETUXIMAB
     Indication: Oesophageal carcinoma
     Dosage: 300 MG (D1), WEEKLY
     Route: 041
     Dates: start: 20250101

REACTIONS (1)
  - Myelosuppression [Recovering/Resolving]

NARRATIVE: CASE EVENT DATE: 20250217
